FAERS Safety Report 7078237-5 (Version None)
Quarter: 2010Q4

REPORT INFORMATION
  Report Type: 
  Country: None (occurrence: None)
  Receive Date: 20101102
  Receipt Date: 20101022
  Transmission Date: 20110411
  Serious: Yes (Disabling, Other)
  Sender: FDA-Public Use
  Company Number: JP-JNJFOC-20101004871

PATIENT
  Age: 9 Year
  Sex: Male

DRUGS (6)
  1. RISPERDAL [Suspect]
     Indication: IMPULSIVE BEHAVIOUR
     Route: 048
  2. STRATTERA [Suspect]
     Indication: ATTENTION DEFICIT/HYPERACTIVITY DISORDER
     Route: 048
  3. STRATTERA [Suspect]
     Route: 048
  4. STRATTERA [Suspect]
     Route: 048
  5. VALPROIC ACID [Concomitant]
     Indication: MOOD SWINGS
     Route: 048
  6. ASPIRIN [Concomitant]
     Indication: STURGE-WEBER SYNDROME
     Route: 048

REACTIONS (4)
  - DYSKINESIA [None]
  - DYSTONIA [None]
  - GAZE PALSY [None]
  - TIC [None]
